FAERS Safety Report 22795849 (Version 3)
Quarter: 2023Q4

REPORT INFORMATION
  Report Type: Report from Study
  Country: TW (occurrence: TW)
  Receive Date: 20230807
  Receipt Date: 20231008
  Transmission Date: 20240110
  Serious: Yes (Other)
  Sender: FDA-Public Use
  Company Number: TW-JNJFOC-20230766111

PATIENT
  Age: 56 Year
  Sex: Female

DRUGS (1)
  1. RYBREVANT [Suspect]
     Active Substance: AMIVANTAMAB-VMJW
     Indication: Lung adenocarcinoma
     Dosage: THE LAST DATE OF TREATMENT WAS 08-SEP-2023.
     Route: 065
     Dates: start: 20221201

REACTIONS (2)
  - Carcinoembryonic antigen increased [Unknown]
  - Malaise [Unknown]
